FAERS Safety Report 23920225 (Version 1)
Quarter: 2024Q2

REPORT INFORMATION
  Report Type: Spontaneous
  Country: US (occurrence: None)
  Receive Date: 20240530
  Receipt Date: 20240530
  Transmission Date: 20240715
  Serious: No
  Sender: FDA-Public Use
  Company Number: None

PATIENT

DRUGS (2)
  1. SODIUM CHLORIDE [Suspect]
     Active Substance: SODIUM CHLORIDE
  2. CALCIUM GLUCONATE [Suspect]
     Active Substance: CALCIUM GLUCONATE
     Dosage: OTHER ROUTE : INJECTON ;?
     Route: 050

REACTIONS (4)
  - Intercepted wrong patient selected [None]
  - Product preparation error [None]
  - Product label confusion [None]
  - Product packaging confusion [None]
